FAERS Safety Report 6334903-8 (Version None)
Quarter: 2009Q3

REPORT INFORMATION
  Report Type: 
  Country: None (occurrence: None)
  Receive Date: 20090827
  Receipt Date: 20090817
  Transmission Date: 20100115
  Serious: Yes (Other)
  Sender: FDA-Public Use
  Company Number: 2009AL002560

PATIENT
  Age: 44 Year
  Sex: Female

DRUGS (33)
  1. DIGOXIN [Suspect]
     Dosage: 0.25MG, PO
     Route: 048
     Dates: start: 20020101
  2. LASIX [Concomitant]
  3. POTASSIUM CHLORIDE [Concomitant]
  4. HYDROQUINONE [Concomitant]
  5. VANIQA [Concomitant]
  6. ULTRAM [Concomitant]
  7. BIAXIN [Concomitant]
  8. DESONIDE [Concomitant]
  9. PLEXION [Concomitant]
  10. SULFAMETHOXAZOLE AND TRIMETHOPRIM [Concomitant]
  11. BRONCHOLATE [Concomitant]
  12. IBUPROFEN [Concomitant]
  13. SULFACETAMIDE [Concomitant]
  14. THYROID TABS [Concomitant]
  15. NULYTELY [Concomitant]
  16. HYDROCODONE BITARTRATE + ACETAMINOPHEN [Concomitant]
  17. CIPRO [Concomitant]
  18. TRIAMCINOLONE [Concomitant]
  19. SPIRONOLACTONE [Concomitant]
  20. ERYTHROMYCIN [Concomitant]
  21. METHYLPREDNISOLONE [Concomitant]
  22. AUGMENTIN [Concomitant]
  23. CLARITIN-D [Concomitant]
  24. RETIN-A [Concomitant]
  25. GENORA [Concomitant]
  26. PROVERA [Concomitant]
  27. SOLAQUIN [Concomitant]
  28. ZANTAC [Concomitant]
  29. CYCRIN [Concomitant]
  30. LUXIQ [Concomitant]
  31. KLOR-CON [Concomitant]
  32. AZITHROMYCIN [Concomitant]
  33. TRETINOIN [Concomitant]

REACTIONS (6)
  - ECONOMIC PROBLEM [None]
  - INJURY [None]
  - POST INFLAMMATORY PIGMENTATION CHANGE [None]
  - PSEUDOFOLLICULITIS BARBAE [None]
  - SURGERY [None]
  - UNEVALUABLE EVENT [None]
